FAERS Safety Report 8366252-0 (Version None)
Quarter: 2012Q2

REPORT INFORMATION
  Report Type: 
  Country: None (occurrence: None)
  Receive Date: 20120517
  Receipt Date: 20120508
  Transmission Date: 20120825
  Serious: Yes (Hospitalization, Other)
  Sender: FDA-Public Use
  Company Number: PHHY2012DE005165

PATIENT

DRUGS (6)
  1. SIMVASTATIN [Concomitant]
     Indication: HYPERCHOLESTEROLAEMIA
     Dosage: 20 MG, UNK
     Route: 048
     Dates: start: 20111227
  2. IBUPROFEN [Concomitant]
  3. GILENYA [Suspect]
     Indication: MULTIPLE SCLEROSIS
     Dosage: 0.5 MG, QD
     Route: 048
  4. SULPIRIDE [Concomitant]
     Indication: DIZZINESS
     Dosage: 300 MG, DAILY
     Route: 048
  5. RAMIPRIL [Concomitant]
     Indication: HYPERTENSION
     Dosage: 5 MG, DAILY
     Route: 048
     Dates: start: 20111228
  6. PANTOPRAZOLE [Concomitant]

REACTIONS (7)
  - TRANSIENT ISCHAEMIC ATTACK [None]
  - BRAIN STEM INFARCTION [None]
  - DYSARTHRIA [None]
  - CEREBROVASCULAR ACCIDENT [None]
  - HEMIPARESIS [None]
  - MUSCULAR WEAKNESS [None]
  - SUPRAVENTRICULAR EXTRASYSTOLES [None]
